FAERS Safety Report 18902785 (Version 1)
Quarter: 2021Q1

REPORT INFORMATION
  Report Type: Spontaneous
  Country: US (occurrence: US)
  Receive Date: 20210217
  Receipt Date: 20210217
  Transmission Date: 20210420
  Serious: Yes (Death, Hospitalization)
  Sender: FDA-Public Use
  Company Number: US-ROCHE-2765673

PATIENT
  Age: 18 Year
  Sex: Male
  Weight: 26.8 kg

DRUGS (2)
  1. SPINRAZA [Concomitant]
     Active Substance: NUSINERSEN
  2. EVRYSDI [Suspect]
     Active Substance: RISDIPLAM
     Indication: SPINAL MUSCULAR ATROPHY
     Dosage: BY G TUBE
     Route: 065
     Dates: end: 20210112

REACTIONS (5)
  - Pallor [Fatal]
  - Heart rate increased [Fatal]
  - Death [Fatal]
  - Sepsis [Fatal]
  - Hypotension [Fatal]

NARRATIVE: CASE EVENT DATE: 20210111
